FAERS Safety Report 10440083 (Version 1)
Quarter: 2014Q3

REPORT INFORMATION
  Report Type: Spontaneous
  Country: US (occurrence: US)
  Receive Date: 20140908
  Receipt Date: 20140908
  Transmission Date: 20150326
  Serious: No
  Sender: FDA-Public Use
  Company Number: US-BRISTOL-MYERS SQUIBB COMPANY-20690004

PATIENT
  Age: 18 Year
  Sex: Male

DRUGS (1)
  1. ABILIFY [Suspect]
     Active Substance: ARIPIPRAZOLE

REACTIONS (7)
  - Delayed puberty [Unknown]
  - Alopecia [Unknown]
  - Fatigue [Unknown]
  - Depressed mood [Unknown]
  - Weight increased [Unknown]
  - Anorgasmia [Unknown]
  - Emotional poverty [Unknown]
